FAERS Safety Report 11425716 (Version 2)
Quarter: 2015Q3

REPORT INFORMATION
  Report Type: Spontaneous
  Country: US (occurrence: US)
  Receive Date: 20150821
  Receipt Date: 20150903
  Transmission Date: 20151125
  Serious: No
  Sender: FDA-Public Use
  Company Number: US-ELI_LILLY_AND_COMPANY-US201101000773

PATIENT
  Age: 61 Year
  Sex: Female

DRUGS (4)
  1. HUMALOG [Suspect]
     Active Substance: INSULIN LISPRO
     Indication: TYPE 1 DIABETES MELLITUS
     Dosage: 40 U, 3/D
     Dates: start: 1995
  2. HUMULIN N [Suspect]
     Active Substance: INSULIN HUMAN
     Indication: TYPE 1 DIABETES MELLITUS
     Dosage: UNK, UNK
  3. HUMALOG [Suspect]
     Active Substance: INSULIN LISPRO
     Indication: TYPE 1 DIABETES MELLITUS
     Dosage: 40 U, 3/D
  4. LANTUS [Concomitant]
     Active Substance: INSULIN GLARGINE
     Dosage: 12 U, UNK

REACTIONS (2)
  - Carpal tunnel syndrome [Unknown]
  - Muscular weakness [Not Recovered/Not Resolved]
